FAERS Safety Report 23312393 (Version 17)
Quarter: 2025Q2

REPORT INFORMATION
  Report Type: Report from Study
  Country: US (occurrence: US)
  Receive Date: 20231219
  Receipt Date: 20250611
  Transmission Date: 20250717
  Serious: Yes (Other)
  Sender: TAKEDA
  Company Number: US-TAKEDA-2023TUS118310

PATIENT
  Sex: Female
  Weight: 61 kg

DRUGS (29)
  1. HUMAN IMMUNOGLOBULIN G [Suspect]
     Active Substance: HUMAN IMMUNOGLOBULIN G
     Indication: Immunodeficiency common variable
     Dosage: 25 GRAM, Q4WEEKS
     Dates: start: 20231205
  2. HUMAN IMMUNOGLOBULIN G [Suspect]
     Active Substance: HUMAN IMMUNOGLOBULIN G
     Dosage: 25 GRAM, Q6WEEKS
  3. HUMAN IMMUNOGLOBULIN G [Suspect]
     Active Substance: HUMAN IMMUNOGLOBULIN G
     Dosage: 25 GRAM, Q4WEEKS
     Dates: start: 202501
  4. EPINEPHRINE [Concomitant]
     Active Substance: EPINEPHRINE
  5. ACETAMINOPHEN [Concomitant]
     Active Substance: ACETAMINOPHEN
  6. OMEPRAZOLE [Concomitant]
     Active Substance: OMEPRAZOLE
  7. DEXAMETHASONE [Concomitant]
     Active Substance: DEXAMETHASONE
  8. CELEBREX [Concomitant]
     Active Substance: CELECOXIB
  9. SODIUM CHLORIDE [Concomitant]
     Active Substance: SODIUM CHLORIDE
  10. ADVIL [Concomitant]
     Active Substance: IBUPROFEN
  11. POTASSIUM CHLORIDE [Concomitant]
     Active Substance: POTASSIUM CHLORIDE
  12. ESTRADIOL [Concomitant]
     Active Substance: ESTRADIOL
  13. LIDOCAINE [Concomitant]
     Active Substance: LIDOCAINE
  14. Omega [Concomitant]
  15. CALCIUM\CHOLECALCIFEROL [Concomitant]
     Active Substance: CALCIUM\CHOLECALCIFEROL
  16. BUMETANIDE [Concomitant]
     Active Substance: BUMETANIDE
  17. LATANOPROST [Concomitant]
     Active Substance: LATANOPROST
  18. DIPHENHYDRAMINE HYDROCHLORIDE [Concomitant]
     Active Substance: DIPHENHYDRAMINE HYDROCHLORIDE
  19. VITAMIN D3 [Concomitant]
     Active Substance: CHOLECALCIFEROL
  20. GABAPENTIN [Concomitant]
     Active Substance: GABAPENTIN
  21. Aller Flo [Concomitant]
  22. WIXELA INHUB [Concomitant]
     Active Substance: FLUTICASONE PROPIONATE\SALMETEROL XINAFOATE
  23. AZITHROMYCIN [Concomitant]
     Active Substance: AZITHROMYCIN
  24. DORZOLAMIDE HYDROCHLORIDE [Concomitant]
     Active Substance: DORZOLAMIDE HYDROCHLORIDE
  25. ALBUTEROL SULFATE [Concomitant]
     Active Substance: ALBUTEROL SULFATE
  26. PROVENTIL HFA [Concomitant]
     Active Substance: ALBUTEROL SULFATE
  27. FLUTICASONE PROPIONATE [Concomitant]
     Active Substance: FLUTICASONE PROPIONATE
  28. PROAIR DIGIHALER [Concomitant]
     Active Substance: ALBUTEROL SULFATE
  29. RABEPRAZOLE SODIUM [Concomitant]
     Active Substance: RABEPRAZOLE SODIUM

REACTIONS (20)
  - Tendon rupture [Unknown]
  - Suicide threat [Unknown]
  - Neuralgia [Unknown]
  - Incorrect drug administration rate [Unknown]
  - Emotional distress [Unknown]
  - Stress [Unknown]
  - Product dose omission issue [Unknown]
  - Inappropriate schedule of product administration [Recovered/Resolved]
  - Respiratory tract infection [Unknown]
  - Infusion related reaction [Unknown]
  - Product use issue [Unknown]
  - Anxiety [Unknown]
  - Pain [Recovered/Resolved]
  - Pain in extremity [Unknown]
  - Chest discomfort [Unknown]
  - Back pain [Unknown]
  - Nausea [Unknown]
  - Headache [Recovered/Resolved]
  - Fatigue [Recovered/Resolved]
  - Dizziness [Recovered/Resolved]
